FAERS Safety Report 8569568-8 (Version None)
Quarter: 2012Q3

REPORT INFORMATION
  Report Type: 
  Country: None (occurrence: None)
  Receive Date: 20120803
  Receipt Date: 20120605
  Transmission Date: 20120928
  Serious: No
  Sender: FDA-Public Use
  Company Number: US-ABBOTT-12P-163-0942902-00

PATIENT
  Sex: Male
  Weight: 118.04 kg

DRUGS (4)
  1. TRICOR [Concomitant]
     Indication: PRODUCT USED FOR UNKNOWN INDICATION
  2. ASPIRIN [Concomitant]
     Indication: PRODUCT USED FOR UNKNOWN INDICATION
  3. NIASPAN [Suspect]
     Indication: BLOOD TRIGLYCERIDES INCREASED
     Dosage: 2 - 500 MG PILLS AT BEDTIME
  4. LIPITOR [Concomitant]
     Indication: PRODUCT USED FOR UNKNOWN INDICATION

REACTIONS (7)
  - PRURITUS GENERALISED [None]
  - SKIN BURNING SENSATION [None]
  - BLOOD GLUCOSE INCREASED [None]
  - THYROID DISORDER [None]
  - PARAESTHESIA [None]
  - HYPERTENSION [None]
  - FLUSHING [None]
